FAERS Safety Report 8739662 (Version 2)
Quarter: 2013Q3

REPORT INFORMATION
  Report Type: Spontaneous
  Country: US (occurrence: US)
  Receive Date: 20120823
  Receipt Date: 20130902
  Transmission Date: 20140515
  Serious: No
  Sender: FDA-Public Use
  Company Number: US-009507513-1208USA000519

PATIENT
  Age: 58 Year
  Sex: Female
  Weight: 76.64 kg

DRUGS (4)
  1. PEGINTRON [Suspect]
     Indication: HEPATITIS C
     Dosage: 120 MICROGRAM, QW, REDIPEN
     Route: 058
     Dates: start: 20120416, end: 20120715
  2. REBETOL [Suspect]
     Dosage: 200 MG, UNKNOWN
     Route: 048
     Dates: end: 20120713
  3. PROCRIT [Suspect]
     Dosage: 40,000 UNITS (1 ML), QW
     Route: 058
     Dates: end: 20120713
  4. INCIVEK [Suspect]
     Dosage: UNK
     Dates: end: 20130713

REACTIONS (2)
  - Glaucoma [Unknown]
  - Dyspnoea [Unknown]
